FAERS Safety Report 7227248-5 (Version None)
Quarter: 2010Q4

REPORT INFORMATION
  Report Type: 
  Country: None (occurrence: None)
  Receive Date: 20101126
  Receipt Date: 20100806
  Transmission Date: 20110411
  Serious: No
  Sender: FDA-Public Use
  Company Number: 313196

PATIENT
  Age: 56 Year
  Sex: Female

DRUGS (1)
  1. VICTOZA INJECTION (LIORAGLUTIDE) SOLUTION FOR INJECTION, 6MG/ML [Suspect]
     Indication: TYPE 2 DIABETES MELLITUS
     Dosage: 1.2 MG, QD, SUBCUTANEOUS
     Route: 058
     Dates: start: 20100807

REACTIONS (3)
  - DIARRHOEA [None]
  - DISCOMFORT [None]
  - EAR INFECTION [None]
